FAERS Safety Report 4342492-2 (Version None)
Quarter: 2004Q1

REPORT INFORMATION
  Report Type: 
  Country: None (occurrence: None)
  Receive Date: 20040213
  Receipt Date: 20031016
  Transmission Date: 20041129
  Serious: Yes (Hospitalization)
  Sender: FDA-Public Use
  Company Number: 348183

PATIENT
  Age: 47 Year
  Sex: Male
  Weight: 74.8 kg

DRUGS (5)
  1. PEGASYS [Suspect]
     Indication: HEPATITIS C
     Dosage: 180 MCG  1 PER WEEK
     Dates: start: 20030912
  2. REBETOL [Concomitant]
  3. SPIRONOLACTONE [Concomitant]
  4. PROPRANOLOL [Concomitant]
  5. PROTONIX [Concomitant]

REACTIONS (2)
  - BACK PAIN [None]
  - DEPRESSION [None]
